FAERS Safety Report 26083477 (Version 1)
Quarter: 2025Q4

REPORT INFORMATION
  Report Type: Spontaneous
  Country: US (occurrence: None)
  Receive Date: 20251124
  Receipt Date: 20251124
  Transmission Date: 20260119
  Serious: Yes (Death)
  Sender: FDA-CTU
  Company Number: None

PATIENT
  Age: 60 Year
  Sex: Male

DRUGS (10)
  1. REVLIMID [Suspect]
     Active Substance: LENALIDOMIDE
     Indication: Plasma cell myeloma
     Dosage: OTHER FREQUENCY : 21 S;?
     Route: 048
     Dates: start: 20250607
  2. AMLODIPINE BESYLATE [Concomitant]
     Active Substance: AMLODIPINE BESYLATE
  3. ASPIRIN EC LOW DOSE [Concomitant]
  4. ACYCLOVIR [Concomitant]
     Active Substance: ACYCLOVIR
  5. DEXAMETHASONE [Concomitant]
     Active Substance: DEXAMETHASONE
  6. MONTELUKAST [Concomitant]
     Active Substance: MONTELUKAST
  7. PANTOPRAZOLE [Concomitant]
     Active Substance: PANTOPRAZOLE
  8. ROSUVASTATIN [Concomitant]
     Active Substance: ROSUVASTATIN
  9. SERTRALINE [Concomitant]
     Active Substance: SERTRALINE HYDROCHLORIDE
  10. SEVELAMER HYDROCHLORIDE [Concomitant]
     Active Substance: SEVELAMER HYDROCHLORIDE

REACTIONS (1)
  - Death [None]
